FAERS Safety Report 19488114 (Version 1)
Quarter: 2021Q3

REPORT INFORMATION
  Report Type: Spontaneous
  Country: DE (occurrence: DE)
  Receive Date: 20210702
  Receipt Date: 20210702
  Transmission Date: 20211014
  Serious: Yes (Death, Hospitalization)
  Sender: FDA-Public Use
  Company Number: DE-JNJFOC-20210529388

PATIENT
  Age: 55 Year
  Sex: Male

DRUGS (1)
  1. YONDELIS [Suspect]
     Active Substance: TRABECTEDIN
     Indication: SOLITARY FIBROUS TUMOUR
     Route: 042
     Dates: start: 20210323, end: 20210518

REACTIONS (5)
  - Catheter site erythema [Unknown]
  - Catheter site pain [Unknown]
  - Disease progression [Fatal]
  - Catheter site related reaction [Unknown]
  - Pneumonia [Fatal]

NARRATIVE: CASE EVENT DATE: 20210523
